FAERS Safety Report 15298515 (Version 2)
Quarter: 2018Q3

REPORT INFORMATION
  Report Type: Report from Study
  Country: IE (occurrence: IE)
  Receive Date: 20180820
  Receipt Date: 20180913
  Transmission Date: 20181010
  Serious: Yes (Death, Other)
  Sender: FDA-Public Use
  Company Number: IE-GILEAD-2018-0356821

PATIENT

DRUGS (3)
  1. LEDIPASVIR/SOFOSBUVIR [Suspect]
     Active Substance: LEDIPASVIR\SOFOSBUVIR
     Indication: CHRONIC HEPATITIS C
     Dosage: UNK
     Route: 065
  2. RIBAVIRIN. [Suspect]
     Active Substance: RIBAVIRIN
     Indication: CHRONIC HEPATITIS C
     Route: 048
  3. RIBAVIRIN. [Suspect]
     Active Substance: RIBAVIRIN
     Dosage: UNK
     Route: 048

REACTIONS (1)
  - Hepatic failure [Fatal]
